FAERS Safety Report 4901658-0 (Version None)
Quarter: 2006Q1

REPORT INFORMATION
  Report Type: 
  Country: None (occurrence: None)
  Receive Date: 20060206
  Receipt Date: 20050616
  Transmission Date: 20060701
  Serious: No
  Sender: FDA-Public Use
  Company Number: US-BRISTOL-MYERS SQUIBB COMPANY-13109707

PATIENT
  Age: 36 Year
  Sex: Male
  Weight: 86 kg

DRUGS (9)
  1. TAXOL [Suspect]
     Indication: KAPOSI'S SARCOMA
     Route: 042
     Dates: start: 20050522
  2. ANZEMET [Concomitant]
     Indication: PREMEDICATION
  3. DECADRON PHOSPHATE [Concomitant]
     Indication: PREMEDICATION
  4. BENADRYL [Concomitant]
     Indication: PREMEDICATION
  5. CIMETIDINE [Concomitant]
     Indication: PREMEDICATION
  6. SUSTIVA [Concomitant]
  7. EPIVIR [Concomitant]
  8. AMBIEN [Concomitant]
  9. OXYCONTIN [Concomitant]

REACTIONS (1)
  - INFUSION SITE REACTION [None]
